FAERS Safety Report 7328996-9 (Version None)
Quarter: 2011Q1

REPORT INFORMATION
  Report Type: 
  Country: None (occurrence: None)
  Receive Date: 20110303
  Receipt Date: 20110218
  Transmission Date: 20110831
  Serious: Yes (Hospitalization, Other)
  Sender: FDA-Public Use
  Company Number: PHHY2011FR14107

PATIENT
  Age: 58 Year

DRUGS (10)
  1. FILGRASTIM [Suspect]
     Indication: PERIPHERAL BLOOD STEM CELL APHERESIS
     Dosage: APPROXIMATELY 10 ?G/KG
  2. CYTARABINE [Suspect]
     Indication: CHEMOTHERAPY
  3. CISPLATIN [Suspect]
     Indication: CHEMOTHERAPY
  4. ETOPOSIDE [Suspect]
     Indication: CHEMOTHERAPY
  5. RITUXIMAB [Suspect]
     Indication: DIFFUSE LARGE B-CELL LYMPHOMA
  6. CYCLOPHOSPHAMIDE [Suspect]
     Indication: DIFFUSE LARGE B-CELL LYMPHOMA
  7. VINCRISTINE [Suspect]
     Indication: DIFFUSE LARGE B-CELL LYMPHOMA
  8. DOXORUBICIN [Suspect]
     Indication: DIFFUSE LARGE B-CELL LYMPHOMA
  9. PREDNISONE TAB [Suspect]
     Indication: DIFFUSE LARGE B-CELL LYMPHOMA
  10. METHYLPREDNISOLONE [Suspect]
     Indication: CHEMOTHERAPY

REACTIONS (9)
  - SUBDURAL HAEMATOMA [None]
  - DISORIENTATION [None]
  - THROMBOCYTOPENIA [None]
  - VOMITING [None]
  - HEADACHE [None]
  - CEREBRAL HAEMORRHAGE [None]
  - APHASIA [None]
  - WHITE BLOOD CELL COUNT INCREASED [None]
  - HAEMOGLOBIN DECREASED [None]
